FAERS Safety Report 25739013 (Version 2)
Quarter: 2025Q4

REPORT INFORMATION
  Report Type: Report from Study
  Country: CL (occurrence: CL)
  Receive Date: 20250829
  Receipt Date: 20251117
  Transmission Date: 20260117
  Serious: Yes (Hospitalization)
  Sender: ALEXION PHARMACEUTICALS
  Company Number: CL-AstraZeneca-CH-00918710A

PATIENT
  Age: 47 Year
  Sex: Male

DRUGS (2)
  1. OLAPARIB [Suspect]
     Active Substance: OLAPARIB
     Indication: Pancreatic carcinoma
     Dosage: 300 MILLIGRAM, Q12H
     Dates: start: 20250618, end: 20250729
  2. OLAPARIB [Suspect]
     Active Substance: OLAPARIB
     Dosage: 2 MILLIGRAM, BID
     Dates: start: 20250619

REACTIONS (2)
  - Vomiting [Recovered/Resolved]
  - Pancreatic pseudocyst [Unknown]

NARRATIVE: CASE EVENT DATE: 20250801
